FAERS Safety Report 7348691-X (Version None)
Quarter: 2011Q1

REPORT INFORMATION
  Report Type: 
  Country: None (occurrence: None)
  Receive Date: 20110314
  Receipt Date: 20110303
  Transmission Date: 20110831
  Serious: No
  Sender: FDA-Public Use
  Company Number: US-BIOGENIDEC-2011BI008749

PATIENT
  Sex: Male

DRUGS (1)
  1. TYSABRI [Suspect]
     Indication: MULTIPLE SCLEROSIS
     Route: 042
     Dates: start: 20090611

REACTIONS (7)
  - STRESS [None]
  - WHITE BLOOD CELL COUNT INCREASED [None]
  - JOINT WARMTH [None]
  - FEELING HOT [None]
  - NECK PAIN [None]
  - SLEEP APNOEA SYNDROME [None]
  - TRIGEMINAL NEURALGIA [None]
